FAERS Safety Report 5251343-3 (Version None)
Quarter: 2007Q1

REPORT INFORMATION
  Report Type: 
  Country: None (occurrence: None)
  Receive Date: 20061201
  Receipt Date: 20060731
  Transmission Date: 20070707
  Serious: No
  Sender: FDA-Public Use
  Company Number: 2006PV018583

PATIENT
  Age: 48 Year
  Sex: Female
  Weight: 113.3993 kg

DRUGS (4)
  1. BYETTA [Suspect]
     Indication: DIABETES MELLITUS NON-INSULIN-DEPENDENT
     Dosage: 5 MCG; BID; SC
     Route: 058
     Dates: start: 20060601, end: 20060729
  2. ACTOS [Suspect]
     Dosage: 30 MG; PO
     Route: 048
     Dates: end: 20060725
  3. GLUCOPHAGE [Concomitant]
  4. DIOVAN HCT [Concomitant]

REACTIONS (6)
  - FLATULENCE [None]
  - NAUSEA [None]
  - NON-CARDIAC CHEST PAIN [None]
  - PRURITUS GENERALISED [None]
  - SNEEZING [None]
  - VOMITING [None]
